FAERS Safety Report 23693638 (Version 1)
Quarter: 2024Q1

REPORT INFORMATION
  Report Type: Spontaneous
  Country: US (occurrence: None)
  Receive Date: 20240331
  Receipt Date: 20240331
  Transmission Date: 20240410
  Serious: Yes (Other)
  Sender: FDA-Public Use
  Company Number: None

PATIENT
  Age: 45 Year
  Sex: Female
  Weight: 51.75 kg

DRUGS (1)
  1. LUMIFY [Suspect]
     Active Substance: BRIMONIDINE TARTRATE
     Dosage: 2 DROPS AS NEEDED OPHTHALMIC
     Route: 047
     Dates: start: 20240328, end: 20240331

REACTIONS (3)
  - Ocular hyperaemia [None]
  - Eye pruritus [None]
  - Eye movement disorder [None]

NARRATIVE: CASE EVENT DATE: 20240328
